FAERS Safety Report 5671872-8 (Version None)
Quarter: 2008Q1

REPORT INFORMATION
  Report Type: 
  Country: None (occurrence: None)
  Receive Date: 20080317
  Receipt Date: 20080317
  Transmission Date: 20080703
  Serious: Yes (Hospitalization)
  Sender: FDA-Public Use
  Company Number: None

PATIENT
  Age: 47 Year
  Sex: Female
  Weight: 58.9676 kg

DRUGS (1)
  1. CHANTIX [Suspect]
     Indication: SMOKING CESSATION THERAPY
     Dosage: 1/2 OF .05MG ONCE A DAY
     Dates: start: 20080312, end: 20080314

REACTIONS (10)
  - AMNESIA [None]
  - CONCUSSION [None]
  - EAR HAEMORRHAGE [None]
  - FALL [None]
  - ILL-DEFINED DISORDER [None]
  - INCORRECT DOSE ADMINISTERED [None]
  - LACERATION [None]
  - LOSS OF CONSCIOUSNESS [None]
  - SCAR [None]
  - WRONG TECHNIQUE IN DRUG USAGE PROCESS [None]
